FAERS Safety Report 10019330 (Version 1)
Quarter: 2014Q1

REPORT INFORMATION
  Report Type: Spontaneous
  Country: GB (occurrence: GB)
  Receive Date: 20140318
  Receipt Date: 20140318
  Transmission Date: 20141002
  Serious: Yes (Other)
  Sender: FDA-Public Use
  Company Number: GB-B.I. PHARMACEUTICALS,INC./RIDGEFIELD-2014-BI-10774UK

PATIENT
  Age: 78 Year
  Sex: Male
  Weight: 85 kg

DRUGS (9)
  1. PRADAXA [Suspect]
     Indication: ATRIAL FIBRILLATION
     Dosage: 220 MG
     Route: 048
     Dates: start: 20131023, end: 20140227
  2. AMLODIPINE [Concomitant]
     Dosage: 10 MG
     Route: 065
  3. ATORVASTATIN [Concomitant]
     Dosage: 20 MG
     Route: 065
  4. BISOPROLOL [Concomitant]
     Dosage: 1.25 MG
     Route: 065
  5. CO-CODAMOL [Concomitant]
     Route: 065
  6. DOXAZOSIN [Concomitant]
     Dosage: 2 MG
     Route: 065
  7. IRBESARTAN [Concomitant]
     Route: 065
  8. LACTULOSE [Concomitant]
     Route: 065
  9. LANSOPRAZOLE [Concomitant]
     Route: 065

REACTIONS (1)
  - Myalgia [Not Recovered/Not Resolved]
